FAERS Safety Report 10284765 (Version 2)
Quarter: 2014Q4

REPORT INFORMATION
  Report Type: Spontaneous
  Country: FR (occurrence: FR)
  Receive Date: 20140708
  Receipt Date: 20141120
  Transmission Date: 20150528
  Serious: Yes (Other)
  Sender: FDA-Public Use
  Company Number: FR-ASTRAZENECA-2014SE47905

PATIENT
  Age: 50 Year
  Sex: Male

DRUGS (4)
  1. HAVLANE [Concomitant]
     Active Substance: LOPRAZOLAM
     Route: 048
  2. XANAX [Concomitant]
     Active Substance: ALPRAZOLAM
     Route: 048
  3. XEROQUEL [Suspect]
     Active Substance: QUETIAPINE FUMARATE
     Route: 048
     Dates: start: 2014
  4. SERESTA [Concomitant]
     Active Substance: OXAZEPAM

REACTIONS (3)
  - Blood creatine phosphokinase increased [Unknown]
  - Muscle spasms [Recovered/Resolved]
  - Myoclonus [Recovered/Resolved]

NARRATIVE: CASE EVENT DATE: 2014
